FAERS Safety Report 6998469-1 (Version None)
Quarter: 2010Q3

REPORT INFORMATION
  Report Type: 
  Country: None (occurrence: None)
  Receive Date: 20100901
  Receipt Date: 20100330
  Transmission Date: 20110219
  Serious: Yes (Disabling)
  Sender: FDA-Public Use
  Company Number: WAES 1003USA04795

PATIENT
  Age: 40 Year
  Sex: Female

DRUGS (2)
  1. MAXALT [Suspect]
     Indication: MIGRAINE
     Dosage: 1 TAB/1X/PO
     Dates: start: 20100101, end: 20100101
  2. NONSTEROIDAL ANTI-INFLAMMATORY DUNK -UNK [Concomitant]

REACTIONS (1)
  - CONVULSION [None]
